FAERS Safety Report 7943587-4 (Version None)
Quarter: 2011Q4

REPORT INFORMATION
  Report Type: 
  Country: None (occurrence: None)
  Receive Date: 20111128
  Receipt Date: 20111122
  Transmission Date: 20120403
  Serious: Yes (Other)
  Sender: FDA-Public Use
  Company Number: DE-ELI_LILLY_AND_COMPANY-DE201111006722

PATIENT
  Age: 77 Year
  Sex: Female

DRUGS (4)
  1. BISOPROLOL FUMARATE [Concomitant]
  2. FORTEO [Suspect]
     Indication: OSTEOPOROSIS
     Dosage: UNK, QD
     Route: 058
     Dates: start: 20110225
  3. VALORON [Concomitant]
  4. AMIODARONE HCL [Concomitant]

REACTIONS (1)
  - ARRHYTHMIA [None]
